FAERS Safety Report 6663715-0 (Version None)
Quarter: 2010Q2

REPORT INFORMATION
  Report Type: 
  Country: None (occurrence: None)
  Receive Date: 20100401
  Receipt Date: 20100324
  Transmission Date: 20101027
  Serious: Yes (Disabling)
  Sender: FDA-Public Use
  Company Number: DE-ROCHE-694294

PATIENT
  Sex: Female

DRUGS (5)
  1. AVASTIN [Suspect]
     Indication: BREAST CANCER
     Route: 065
     Dates: start: 20080801
  2. ANASTROZOLE [Concomitant]
     Dates: start: 20051201, end: 20080801
  3. PACLITAXEL [Concomitant]
     Dates: start: 20080801, end: 20090301
  4. AROMASIN [Concomitant]
     Dates: start: 20090501
  5. CAELYX [Concomitant]
     Dates: start: 20090701

REACTIONS (1)
  - OSTEONECROSIS [None]
